FAERS Safety Report 23748496 (Version 8)
Quarter: 2024Q4

REPORT INFORMATION
  Report Type: Spontaneous
  Country: US (occurrence: US)
  Receive Date: 20240416
  Receipt Date: 20241122
  Transmission Date: 20250115
  Serious: Yes (Other)
  Sender: PFIZER
  Company Number: US-PFIZER INC-202400085287

PATIENT
  Age: 69 Year
  Sex: Male
  Weight: 74.84 kg

DRUGS (4)
  1. VELSIPITY [Suspect]
     Active Substance: ETRASIMOD ARGININE
     Indication: Crohn^s disease
     Dosage: TAKE 2 MG BY MOUTH DAILY
     Route: 048
  2. VELSIPITY [Suspect]
     Active Substance: ETRASIMOD ARGININE
     Indication: Irritable bowel syndrome
     Dosage: 2 MG, 1X/DAY
     Route: 048
     Dates: start: 202403
  3. VELSIPITY [Suspect]
     Active Substance: ETRASIMOD ARGININE
     Indication: Autoimmune disorder
  4. IRON [Concomitant]
     Active Substance: IRON
     Dosage: UNK

REACTIONS (8)
  - Retinal tear [Unknown]
  - Off label use [Unknown]
  - Lacrimation increased [Not Recovered/Not Resolved]
  - Decreased appetite [Unknown]
  - Weight increased [Not Recovered/Not Resolved]
  - Abdominal pain upper [Unknown]
  - Hunger [Unknown]
  - Eye disorder [Unknown]

NARRATIVE: CASE EVENT DATE: 20240101
